FAERS Safety Report 7565896-3 (Version None)
Quarter: 2011Q2

REPORT INFORMATION
  Report Type: 
  Country: None (occurrence: None)
  Receive Date: 20110623
  Receipt Date: 20110617
  Transmission Date: 20111010
  Serious: Yes (Other)
  Sender: FDA-Public Use
  Company Number: US-PFIZER INC-2011120676

PATIENT
  Sex: Male
  Weight: 112.5 kg

DRUGS (2)
  1. SUTENT [Suspect]
     Dosage: 50 MG, 1X/DAY
     Route: 048
  2. ACETAMINOPHEN AND HYDROCODONE BITARTRATE [Concomitant]
     Dosage: 5-325 MG

REACTIONS (5)
  - PALMAR-PLANTAR ERYTHRODYSAESTHESIA SYNDROME [None]
  - GLOSSODYNIA [None]
  - ALOPECIA [None]
  - BLOOD PRESSURE INCREASED [None]
  - HAIR TEXTURE ABNORMAL [None]
